FAERS Safety Report 18053667 (Version 1)
Quarter: 2020Q3

REPORT INFORMATION
  Report Type: Spontaneous
  Country: US (occurrence: US)
  Receive Date: 20200721
  Receipt Date: 20200721
  Transmission Date: 20201103
  Serious: Yes (Other)
  Sender: FDA-Public Use
  Company Number: None

PATIENT
  Age: 47 Year
  Sex: Male
  Weight: 108 kg

DRUGS (2)
  1. CIALIS [Suspect]
     Active Substance: TADALAFIL
     Indication: ERECTILE DYSFUNCTION
     Dosage: ?          QUANTITY:30 TABLET(S);?
     Route: 048
  2. CIALIS [Suspect]
     Active Substance: TADALAFIL
     Indication: BENIGN PROSTATIC HYPERPLASIA
     Dosage: ?          QUANTITY:30 TABLET(S);?
     Route: 048

REACTIONS (10)
  - Aggression [None]
  - Stress [None]
  - Anger [None]
  - Feeling abnormal [None]
  - Emotional disorder [None]
  - Thinking abnormal [None]
  - Irritability [None]
  - Mood altered [None]
  - Drug ineffective [None]
  - Flushing [None]

NARRATIVE: CASE EVENT DATE: 20200615
